FAERS Safety Report 6382778-3 (Version None)
Quarter: 2009Q3

REPORT INFORMATION
  Report Type: 
  Country: None (occurrence: None)
  Receive Date: 20090930
  Receipt Date: 20090922
  Transmission Date: 20100115
  Serious: Yes (Other)
  Sender: FDA-Public Use
  Company Number: IL-SANOFI-SYNTHELABO-A01200909833

PATIENT
  Age: 76 Year
  Sex: Female

DRUGS (5)
  1. COZAAR [Concomitant]
     Indication: DRUG USE FOR UNKNOWN INDICATION
     Dosage: UNK
     Route: 048
  2. NORMITEN [Concomitant]
     Indication: DRUG USE FOR UNKNOWN INDICATION
     Dosage: UNK
     Route: 048
  3. GLUCOPHAGE [Concomitant]
     Indication: DRUG USE FOR UNKNOWN INDICATION
     Dosage: UNK
     Route: 048
  4. INSULIN MIXTARD [Concomitant]
     Indication: DRUG USE FOR UNKNOWN INDICATION
     Dosage: UNK
     Route: 058
  5. PLAVIX [Suspect]
     Indication: CEREBROVASCULAR ACCIDENT
     Dosage: UNK
     Route: 048
     Dates: start: 20090901, end: 20090901

REACTIONS (3)
  - CONFUSIONAL STATE [None]
  - DELIRIUM [None]
  - MEMORY IMPAIRMENT [None]
